FAERS Safety Report 18596909 (Version 2)
Quarter: 2021Q1

REPORT INFORMATION
  Report Type: Spontaneous
  Country: CZ (occurrence: CZ)
  Receive Date: 20201209
  Receipt Date: 20210212
  Transmission Date: 20210419
  Serious: Yes (Other)
  Sender: FDA-Public Use
  Company Number: CZ-TEVA-2020-CZ-1857110

PATIENT
  Sex: Female

DRUGS (4)
  1. CARBOPLATIN. [Suspect]
     Active Substance: CARBOPLATIN
     Indication: OVARIAN CANCER
     Route: 065
  2. PACLITAXEL. [Suspect]
     Active Substance: PACLITAXEL
     Indication: OVARIAN CANCER
     Route: 065
  3. TOPOTECAN [Suspect]
     Active Substance: TOPOTECAN HYDROCHLORIDE
     Indication: OVARIAN CANCER
     Dosage: 6 CYCLES OF TOPOTECAN HYDROCHLORIDE
     Route: 065
     Dates: start: 201001, end: 201005
  4. DOXORUBICIN [Suspect]
     Active Substance: DOXORUBICIN
     Indication: OVARIAN CANCER
     Dosage: 6 CYCLES
     Route: 065
     Dates: start: 201409, end: 201502

REACTIONS (4)
  - Thrombocytopenia [Unknown]
  - Dysplasia [Unknown]
  - Myelodysplastic syndrome [Unknown]
  - Anaemia [Unknown]

NARRATIVE: CASE EVENT DATE: 201807
